FAERS Safety Report 14840342 (Version 1)
Quarter: 2018Q2

REPORT INFORMATION
  Report Type: Spontaneous
  Country: US (occurrence: US)
  Receive Date: 20180503
  Receipt Date: 20180503
  Transmission Date: 20180711
  Serious: No
  Sender: FDA-Public Use
  Company Number: US-SUN PHARMACEUTICAL INDUSTRIES LTD-2018US-163875

PATIENT
  Age: 66 Year
  Sex: Male

DRUGS (2)
  1. BROMSITE [Suspect]
     Active Substance: BROMFENAC SODIUM
     Dosage: UNK
     Route: 065
     Dates: start: 20170517
  2. BROMSITE [Suspect]
     Active Substance: BROMFENAC SODIUM
     Indication: PRODUCT USED FOR UNKNOWN INDICATION
     Dosage: UNK
     Route: 031
     Dates: start: 201711

REACTIONS (5)
  - Incorrect drug administration duration [Unknown]
  - Extra dose administered [Unknown]
  - Product container issue [Unknown]
  - Eye swelling [Unknown]
  - Product lot number issue [Unknown]

NARRATIVE: CASE EVENT DATE: 201711
